FAERS Safety Report 7989234-7 (Version None)
Quarter: 2011Q4

REPORT INFORMATION
  Report Type: 
  Country: None (occurrence: None)
  Receive Date: 20111216
  Receipt Date: 20111216
  Transmission Date: 20120403
  Serious: Yes (Other)
  Sender: FDA-Public Use
  Company Number: None

PATIENT
  Sex: Female
  Weight: 68.0396 kg

DRUGS (1)
  1. CARBOCAINE [Suspect]
     Indication: ARTIFICIAL CROWN PROCEDURE
     Dosage: INJECTION INTO GUMS SPRING
     Dates: start: 20090101

REACTIONS (2)
  - FALL [None]
  - HYPOAESTHESIA [None]
